FAERS Safety Report 17062783 (Version 2)
Quarter: 2019Q4

REPORT INFORMATION
  Report Type: Spontaneous
  Country: PL (occurrence: PL)
  Receive Date: 20191122
  Receipt Date: 20191202
  Transmission Date: 20200122
  Serious: Yes (Other)
  Sender: FDA-Public Use
  Company Number: PL-AMGEN-POLSP2019189651

PATIENT
  Age: 55 Year
  Sex: Male

DRUGS (5)
  1. PANITUMUMAB [Suspect]
     Active Substance: PANITUMUMAB
     Indication: RECTAL ADENOCARCINOMA
     Dosage: UNK
     Route: 065
     Dates: start: 20190508, end: 2019
  2. OXALIPLATIN. [Suspect]
     Active Substance: OXALIPLATIN
     Indication: RECTAL ADENOCARCINOMA
     Dosage: UNK, (FROM SEP/2019, TREATMENT CYCLE TO Q3WK
     Route: 065
     Dates: start: 20190508, end: 2019
  3. PANITUMUMAB [Suspect]
     Active Substance: PANITUMUMAB
     Dosage: UNK UNK, Q3WK
     Route: 065
     Dates: start: 201909
  4. FOLINIC ACID [Concomitant]
     Active Substance: LEUCOVORIN
     Indication: RECTAL ADENOCARCINOMA
     Dosage: UNK, (FROM SEP/2019, TREATMENT CYCLE TO Q3WK
     Dates: start: 20190508
  5. 5-FU [FLUOROURACIL] [Concomitant]
     Active Substance: FLUOROURACIL
     Indication: RECTAL ADENOCARCINOMA
     Dosage: UNK, (FROM SEP/2019, TREATMENT CYCLE TO Q3WK
     Dates: start: 20190508

REACTIONS (1)
  - Thrombocytopenia [Unknown]

NARRATIVE: CASE EVENT DATE: 2019
